FAERS Safety Report 11749099 (Version 1)
Quarter: 2015Q4

REPORT INFORMATION
  Report Type: Spontaneous
  Country: US (occurrence: None)
  Receive Date: 20151117
  Receipt Date: 20151117
  Transmission Date: 20160304
  Serious: Yes (Other)
  Sender: FDA-Public Use
  Company Number: None

PATIENT
  Age: 59 Year
  Sex: Male
  Weight: 102.06 kg

DRUGS (1)
  1. LISINOPRIL 20MG LUPIN [Suspect]
     Active Substance: LISINOPRIL
     Indication: HYPERTENSION
     Dosage: 1 PILL ONCE DAILY TAKEN BY MOUTH
     Route: 048
     Dates: start: 20151030, end: 20151109

REACTIONS (7)
  - Cough [None]
  - Hypertension [None]
  - Dysphonia [None]
  - Aphonia [None]
  - Laryngitis [None]
  - Nasopharyngitis [None]
  - Retching [None]

NARRATIVE: CASE EVENT DATE: 20151030
